FAERS Safety Report 18727268 (Version 2)
Quarter: 2023Q1

REPORT INFORMATION
  Report Type: Spontaneous
  Country: US (occurrence: None)
  Receive Date: 20210111
  Receipt Date: 20230108
  Transmission Date: 20230417
  Serious: No
  Sender: FDA-Public Use
  Company Number: US-ROCHE-2656328

PATIENT
  Sex: Male

DRUGS (1)
  1. HEMLIBRA [Suspect]
     Active Substance: EMICIZUMAB-KXWH
     Indication: Factor VIII deficiency
     Dosage: FORM OF ADMIN.:30MG/ML VIAL?MAINTENANCE DOSE: INJECT 1 ML (30 MG)
     Route: 058

REACTIONS (4)
  - Haemorrhage [Unknown]
  - Head injury [Recovered/Resolved with Sequelae]
  - Epistaxis [Recovered/Resolved with Sequelae]
  - Skin laceration [Recovered/Resolved]

NARRATIVE: CASE EVENT DATE: 20220731
